FAERS Safety Report 17555848 (Version 1)
Quarter: 2020Q1

REPORT INFORMATION
  Report Type: Spontaneous
  Country: US (occurrence: US)
  Receive Date: 20200310
  Receipt Date: 20200310
  Transmission Date: 20200409
  Serious: No
  Sender: FDA-Public Use
  Company Number: None

PATIENT

DRUGS (1)
  1. MELATONIN [Suspect]
     Active Substance: MELATONIN

REACTIONS (3)
  - Wrong schedule [None]
  - Product administration error [None]
  - Transcription medication error [None]
